FAERS Safety Report 20444054 (Version 1)
Quarter: 2022Q1

REPORT INFORMATION
  Report Type: Spontaneous
  Country: US (occurrence: US)
  Receive Date: 20220208
  Receipt Date: 20220208
  Transmission Date: 20220423
  Serious: No
  Sender: FDA-Public Use
  Company Number: US-SA-SAC20220203001667

PATIENT
  Age: 46 Year
  Sex: Female

DRUGS (22)
  1. DUPIXENT [Suspect]
     Active Substance: DUPILUMAB
     Indication: Asthma
     Dosage: 300 MG, QOW
     Route: 058
  2. ALBUTEROL SULFATE [Concomitant]
     Active Substance: ALBUTEROL SULFATE
  3. AMLODIPINE [Concomitant]
     Active Substance: AMLODIPINE BESYLATE
  4. ACETAMINOPHEN\CODEINE PHOSPHATE [Concomitant]
     Active Substance: ACETAMINOPHEN\CODEINE PHOSPHATE
     Dosage: 300-30MG
  5. BUDESONIDE [Concomitant]
     Active Substance: BUDESONIDE
  6. ASPIRIN [Concomitant]
     Active Substance: ASPIRIN
  7. BUDESONIDE [Concomitant]
     Active Substance: BUDESONIDE
  8. DULOXETINE [Concomitant]
     Active Substance: DULOXETINE
  9. ESTRADIOL [Concomitant]
     Active Substance: ESTRADIOL
  10. GABAPENTIN [Concomitant]
     Active Substance: GABAPENTIN
  11. IBUPROFEN [Concomitant]
     Active Substance: IBUPROFEN
  12. IPRATROPIUM [Concomitant]
     Active Substance: IPRATROPIUM
  13. LORATADINE [Concomitant]
     Active Substance: LORATADINE
  14. MONTELUKAST SODIUM [Concomitant]
     Active Substance: MONTELUKAST SODIUM
  15. PREDNISONE [Concomitant]
     Active Substance: PREDNISONE
  16. TRELEGY ELLIPTA [Concomitant]
     Active Substance: FLUTICASONE FUROATE\UMECLIDINIUM BROMIDE\VILANTEROL TRIFENATATE
  17. VITAMIN C [Concomitant]
     Active Substance: ASCORBIC ACID
  18. ZINC [Concomitant]
     Active Substance: ZINC
     Dosage: 50MG
  19. LEVOCETIRIZINE DIHYDROCHLORIDE [Concomitant]
     Active Substance: LEVOCETIRIZINE DIHYDROCHLORIDE
  20. METHYLPREDNISOLONE [Concomitant]
     Active Substance: METHYLPREDNISOLONE
  21. POLYMYXIN [Concomitant]
     Active Substance: POLYMYXIN
  22. FOLIC ACID\IRON\MINERALS\VITAMINS [Concomitant]
     Active Substance: FOLIC ACID\IRON\MINERALS\VITAMINS

REACTIONS (1)
  - Impaired quality of life [Unknown]

NARRATIVE: CASE EVENT DATE: 20220128
